FAERS Safety Report 8905773 (Version 2)
Quarter: 2012Q4

REPORT INFORMATION
  Report Type: Report from Study
  Country: US (occurrence: US)
  Receive Date: 20121113
  Receipt Date: 20121121
  Transmission Date: 20130627
  Serious: Yes (Other)
  Sender: FDA-Public Use
  Company Number: US-US-EMD SERONO, INC.-7172877

PATIENT
  Age: 40 Year
  Sex: Female

DRUGS (2)
  1. REBIF [Suspect]
     Indication: PRODUCT USED FOR UNKNOWN INDICATION
     Route: 058
     Dates: start: 20120109, end: 201208
  2. REBIF [Suspect]
     Route: 058
     Dates: start: 20121116

REACTIONS (3)
  - Intervertebral disc injury [Recovering/Resolving]
  - Intervertebral disc protrusion [Recovering/Resolving]
  - Stress [Unknown]
